FAERS Safety Report 18570079 (Version 1)
Quarter: 2020Q4

REPORT INFORMATION
  Report Type: Spontaneous
  Country: IT (occurrence: IT)
  Receive Date: 20201202
  Receipt Date: 20201202
  Transmission Date: 20210114
  Serious: Yes (Other)
  Sender: FDA-Public Use
  Company Number: IT-PFIZER INC-2020474040

PATIENT
  Age: 53 Year
  Sex: Female

DRUGS (3)
  1. LAMOTRIGINE. [Concomitant]
     Active Substance: LAMOTRIGINE
     Indication: HISTRIONIC PERSONALITY DISORDER
     Dosage: 1 DF, 1X/DAY
     Route: 048
  2. TAVOR (LORAZEPAM) [Suspect]
     Active Substance: LORAZEPAM
     Indication: HISTRIONIC PERSONALITY DISORDER
     Dosage: 10 DF (10 MG), SINGLE
     Route: 048
     Dates: start: 20190302, end: 20190303
  3. QUETIAPINE. [Concomitant]
     Active Substance: QUETIAPINE
     Indication: HISTRIONIC PERSONALITY DISORDER
     Dosage: 1 DF, 1X/DAY
     Route: 048

REACTIONS (6)
  - Intentional overdose [Unknown]
  - Off label use [Unknown]
  - Drug abuse [Recovering/Resolving]
  - Hypokalaemia [Recovering/Resolving]
  - Hypokinesia [Recovering/Resolving]
  - Bradyphrenia [Recovering/Resolving]

NARRATIVE: CASE EVENT DATE: 20190302
